FAERS Safety Report 9188563 (Version 1)
Quarter: 2013Q1

REPORT INFORMATION
  Report Type: Spontaneous
  Country: US (occurrence: US)
  Receive Date: 20130325
  Receipt Date: 20130325
  Transmission Date: 20140127
  Serious: No
  Sender: FDA-Public Use
  Company Number: US-B.I. PHARMACEUTICALS,INC./RIDGEFIELD-2013-BI-07365BP

PATIENT
  Age: 55 Year
  Sex: Male
  Weight: 132 kg

DRUGS (1)
  1. ZANTAC COOL MINT (TABLETS) [Suspect]
     Indication: GASTROOESOPHAGEAL REFLUX DISEASE
     Dosage: 300 MG
     Route: 048
     Dates: start: 20130305

REACTIONS (1)
  - Pruritus generalised [Not Recovered/Not Resolved]
